FAERS Safety Report 4977018-3 (Version None)
Quarter: 2006Q2

REPORT INFORMATION
  Report Type: 
  Country: None (occurrence: None)
  Receive Date: 20060413
  Receipt Date: 20060403
  Transmission Date: 20061013
  Serious: Yes (Hospitalization, Other)
  Sender: FDA-Public Use
  Company Number: HQWYE087813AUG03

PATIENT
  Age: 46 Year
  Sex: Female
  Weight: 83.99 kg

DRUGS (4)
  1. PREMPRO (CONJUGATED ESTROGENS/MEDROXYPROTESTERONE ACETATE, TABLET, 5 M [Suspect]
     Dosage: ORAL
     Route: 048
     Dates: start: 19940101, end: 20000301
  2. PREMARIN [Suspect]
     Dosage: ORAL
     Route: 048
     Dates: start: 19910101, end: 19930101
  3. PROVERA [Suspect]
     Dosage: ORAL
     Route: 048
     Dates: start: 19910101, end: 19930101
  4. ZOLOFT [Concomitant]

REACTIONS (14)
  - ATELECTASIS [None]
  - BREAST CANCER [None]
  - CARDIAC FAILURE CONGESTIVE [None]
  - CARDIOMEGALY [None]
  - CHRONIC INFLAMMATORY DEMYELINATING POLYRADICULONEUROPATHY [None]
  - CORONARY ARTERY OCCLUSION [None]
  - HYPERTENSION [None]
  - ILIAC ARTERY OCCLUSION [None]
  - LUNG INFILTRATION [None]
  - MYOCARDIAL INFARCTION [None]
  - MYOCARDIAL ISCHAEMIA [None]
  - PERONEAL MUSCULAR ATROPHY [None]
  - PULMONARY FIBROSIS [None]
  - THROMBOSIS [None]
